FAERS Safety Report 24787002 (Version 1)
Quarter: 2024Q4

REPORT INFORMATION
  Report Type: Spontaneous
  Country: US (occurrence: US)
  Receive Date: 20241230
  Receipt Date: 20241230
  Transmission Date: 20250115
  Serious: Yes (Other)
  Sender: OXFORD PHARMACEUTICALS, LLC
  Company Number: US-Oxford Pharmaceuticals, LLC-2168003

PATIENT
  Age: 75 Year
  Sex: Male
  Weight: 188 kg

DRUGS (4)
  1. METHOCARBAMOL [Suspect]
     Active Substance: METHOCARBAMOL
     Indication: Muscle relaxant therapy
  2. BRIUMVI [Suspect]
     Active Substance: UBLITUXIMAB-XIIY
     Dates: start: 20240312, end: 20240312
  3. COVID-19 VACCINE [Concomitant]
     Dates: start: 20240101
  4. INFLUENZA VIRUS VACCINE [Concomitant]
     Active Substance: INFLUENZA VIRUS VACCINE
     Dates: start: 20240101

REACTIONS (3)
  - Lupus-like syndrome [Unknown]
  - Rash [Recovered/Resolved]
  - Systemic lupus erythematosus rash [Recovering/Resolving]
